FAERS Safety Report 8065871-9 (Version None)
Quarter: 2012Q1

REPORT INFORMATION
  Report Type: 
  Country: None (occurrence: None)
  Receive Date: 20120117
  Receipt Date: 20120111
  Transmission Date: 20120608
  Serious: Yes (Other)
  Sender: FDA-Public Use
  Company Number: 2011MA018119

PATIENT
  Age: 2 Year
  Sex: Male

DRUGS (1)
  1. MINOXIDIL [Suspect]
     Indication: PRODUCT USED FOR UNKNOWN INDICATION
     Dosage: 100 MG; PO
     Route: 048

REACTIONS (2)
  - TACHYCARDIA [None]
  - ACCIDENTAL EXPOSURE [None]
